FAERS Safety Report 4563006-8 (Version None)
Quarter: 2005Q1

REPORT INFORMATION
  Report Type: 
  Country: None (occurrence: None)
  Receive Date: 20050127
  Receipt Date: 20050117
  Transmission Date: 20050727
  Serious: Yes (Other)
  Sender: FDA-Public Use
  Company Number: JP-ABBOTT-05P-087-0286913-00

PATIENT
  Age: 71 Year
  Sex: Male

DRUGS (13)
  1. CLARITH [Suspect]
     Indication: PNEUMONIA
     Route: 048
     Dates: start: 20040503, end: 20040509
  2. 1-(4-METHYLPHENYL)ETHYLNICOTINATE 1-NAPHTHYLACETIC ACID [Suspect]
     Indication: DRUG USE FOR UNKNOWN INDICATION
     Route: 048
     Dates: start: 20040301, end: 20040509
  3. CIMETIDINE [Suspect]
     Indication: DRUG USE FOR UNKNOWN INDICATION
     Route: 048
     Dates: start: 20020316, end: 20040509
  4. URSODEOXYCHOLIC ACID [Suspect]
     Indication: DRUG USE FOR UNKNOWN INDICATION
     Route: 048
     Dates: start: 20000216, end: 20040509
  5. CAMOSTAT MESILATE [Suspect]
     Indication: DRUG USE FOR UNKNOWN INDICATION
     Route: 048
     Dates: start: 20000216, end: 20040509
  6. THEOPHYLLINE [Suspect]
     Indication: DRUG USE FOR UNKNOWN INDICATION
     Route: 048
     Dates: start: 20040101, end: 20040509
  7. BROMHEXINE HYDROCHLORIDE [Suspect]
     Indication: DRUG USE FOR UNKNOWN INDICATION
     Route: 048
     Dates: start: 20040101, end: 20040509
  8. MONTELUKAST SODIUM [Suspect]
     Indication: DRUG USE FOR UNKNOWN INDICATION
     Route: 048
  9. OXYPERTINE [Suspect]
     Indication: DRUG USE FOR UNKNOWN INDICATION
     Route: 048
     Dates: end: 20040509
  10. IMIPENEM CILASTATIN SODIUM [Concomitant]
     Indication: DRUG USE FOR UNKNOWN INDICATION
     Route: 050
  11. TULOBUTEROL [Concomitant]
     Indication: DRUG USE FOR UNKNOWN INDICATION
  12. BUDESONIDE [Concomitant]
     Indication: DRUG USE FOR UNKNOWN INDICATION
     Route: 055
  13. SULTAMICILLIN TOSILATE [Concomitant]
     Indication: DRUG USE FOR UNKNOWN INDICATION
     Route: 050

REACTIONS (1)
  - HAEMOLYTIC ANAEMIA [None]
